FAERS Safety Report 9827386 (Version 1)
Quarter: 2014Q1

REPORT INFORMATION
  Report Type: Spontaneous
  Country: US (occurrence: US)
  Receive Date: 20140117
  Receipt Date: 20140117
  Transmission Date: 20141002
  Serious: Yes (Other)
  Sender: FDA-Public Use
  Company Number: US-ACTAVIS-2014-00023

PATIENT
  Age: 32 Year
  Sex: Female

DRUGS (1)
  1. PACLITAXEL (ATLLC) (PACLITAXEL) UNK, UNKUNK [Suspect]
     Indication: BREAST CANCER METASTATIC
     Dosage: WEEKLY TREATMENTS FOR 3 WEEKS, FOURTH WEEK HOLIDAY
     Route: 065

REACTIONS (1)
  - Cystoid macular oedema [Recovered/Resolved]
